FAERS Safety Report 16961056 (Version 2)
Quarter: 2019Q4

REPORT INFORMATION
  Report Type: Spontaneous
  Country: US (occurrence: US)
  Receive Date: 20191025
  Receipt Date: 20191108
  Transmission Date: 20200122
  Serious: No
  Sender: FDA-Public Use
  Company Number: US-GLAXOSMITHKLINE-US2019189759

PATIENT
  Sex: Female

DRUGS (3)
  1. NICODERM CQ [Suspect]
     Active Substance: NICOTINE
     Indication: SMOKING CESSATION THERAPY
     Dosage: 7 MG, UNK
     Dates: start: 201910
  2. NICORETTE [Suspect]
     Active Substance: NICOTINE
     Indication: SMOKING CESSATION THERAPY
     Dosage: 4 MG, UNK
     Dates: start: 20191005, end: 20191005
  3. NICODERM CQ [Suspect]
     Active Substance: NICOTINE
     Indication: SMOKING CESSATION THERAPY
     Dosage: 14 MG, UNK
     Dates: start: 20191016

REACTIONS (12)
  - Malaise [Unknown]
  - Application site swelling [Unknown]
  - Skin exfoliation [Unknown]
  - Vomiting [Recovered/Resolved]
  - Application site erythema [Unknown]
  - Application site reaction [Unknown]
  - Application site pruritus [Unknown]
  - Drug intolerance [Unknown]
  - Application site rash [Unknown]
  - Application site bruise [Recovering/Resolving]
  - Application site papules [Unknown]
  - Application site irritation [Unknown]

NARRATIVE: CASE EVENT DATE: 20191016
